FAERS Safety Report 5191813-X (Version None)
Quarter: 2006Q4

REPORT INFORMATION
  Report Type: 
  Country: None (occurrence: None)
  Receive Date: 20061220
  Receipt Date: 20061204
  Transmission Date: 20070319
  Serious: Yes (Other)
  Sender: FDA-Public Use
  Company Number: DSA_61299_2006

PATIENT
  Age: 5 Year
  Sex: Female
  Weight: 45 kg

DRUGS (3)
  1. DIASTAT [Suspect]
     Indication: CONVULSION
     Dosage: 10 MG PRN RC
     Dates: start: 20061111, end: 20061111
  2. PHENOBARBITAL TAB [Concomitant]
  3. TOPAMAX [Concomitant]

REACTIONS (3)
  - DEVICE FAILURE [None]
  - DRUG DISPENSING ERROR [None]
  - DRUG DOSE OMISSION [None]
